FAERS Safety Report 15301978 (Version 1)
Quarter: 2018Q3

REPORT INFORMATION
  Report Type: Spontaneous
  Country: HR (occurrence: HR)
  Receive Date: 20180821
  Receipt Date: 20180821
  Transmission Date: 20181010
  Serious: Yes (Other)
  Sender: FDA-Public Use
  Company Number: HR-TEVA-2018-HR-944908

PATIENT
  Age: 17 Year
  Sex: Male

DRUGS (4)
  1. CITRAM [Suspect]
     Active Substance: ESCITALOPRAM OXALATE
     Dosage: 90 MILLIGRAM DAILY;
     Route: 048
     Dates: start: 20180520, end: 20180520
  2. KETONAL [Suspect]
     Active Substance: KETOPROFEN
     Dosage: 1 DOSAGE FORMS DAILY;
     Route: 048
     Dates: start: 20180520, end: 20180520
  3. ARIPIPRAZOL [Suspect]
     Active Substance: ARIPIPRAZOLE
     Dosage: 20 MILLIGRAM DAILY;
     Route: 048
     Dates: start: 20180520, end: 20180520
  4. Q PIN [Suspect]
     Active Substance: QUETIAPINE FUMARATE
     Dosage: 50 MILLIGRAM DAILY;
     Route: 048
     Dates: start: 20180520, end: 20180520

REACTIONS (3)
  - Intentional overdose [Unknown]
  - Suicide attempt [Unknown]
  - No adverse event [Unknown]

NARRATIVE: CASE EVENT DATE: 20180520
